FAERS Safety Report 4444560-3 (Version None)
Quarter: 2004Q3

REPORT INFORMATION
  Report Type: 
  Country: None (occurrence: None)
  Receive Date: 20040902
  Receipt Date: 20040820
  Transmission Date: 20050211
  Serious: Yes (Hospitalization, Other)
  Sender: FDA-Public Use
  Company Number: 2004058016

PATIENT
  Age: 52 Year
  Sex: Female
  Weight: 105.6881 kg

DRUGS (8)
  1. LIPITOR [Suspect]
     Indication: HYPERLIPIDAEMIA
     Dosage: 10 MG (10 MG, 1 IN 1 D), ORAL
     Route: 048
     Dates: end: 20040813
  2. PROPOFOL [Suspect]
     Indication: ANAESTHESIA
     Dosage: (1000 MG, UNKNOWN)
     Dates: start: 20040801, end: 20040801
  3. PRINZIDE [Concomitant]
  4. CONJUGATED ESTROGENS [Concomitant]
  5. IMIPRAMINE [Concomitant]
  6. VICODIN [Concomitant]
  7. LORAZEPAM [Concomitant]
  8. CARISOPRODOL [Concomitant]

REACTIONS (4)
  - ANAESTHETIC COMPLICATION [None]
  - ANKLE FRACTURE [None]
  - RENAL FAILURE ACUTE [None]
  - RHABDOMYOLYSIS [None]
